FAERS Safety Report 25586135 (Version 1)
Quarter: 2025Q3

REPORT INFORMATION
  Report Type: Spontaneous
  Country: EU (occurrence: EU)
  Receive Date: 20250721
  Receipt Date: 20250721
  Transmission Date: 20251021
  Serious: Yes (Other)
  Sender: MYLAN
  Company Number: EU-002147023-NVSC2025RO099133

PATIENT
  Age: 36 Year
  Sex: Female

DRUGS (4)
  1. EVEROLIMUS [Suspect]
     Active Substance: EVEROLIMUS
     Indication: Liver transplant
  2. EVEROLIMUS [Suspect]
     Active Substance: EVEROLIMUS
     Route: 065
  3. EVEROLIMUS [Suspect]
     Active Substance: EVEROLIMUS
     Route: 065
  4. EVEROLIMUS [Suspect]
     Active Substance: EVEROLIMUS

REACTIONS (8)
  - Hepatic cirrhosis [Unknown]
  - Varices oesophageal [Unknown]
  - Transplant rejection [Unknown]
  - Vanishing bile duct syndrome [Unknown]
  - Blood bilirubin increased [Unknown]
  - Hypoalbuminaemia [Unknown]
  - Liver disorder [Unknown]
  - Hepatic function abnormal [Unknown]
